FAERS Safety Report 6142536-1 (Version None)
Quarter: 2009Q2

REPORT INFORMATION
  Report Type: 
  Country: None (occurrence: None)
  Receive Date: 20090403
  Receipt Date: 20090303
  Transmission Date: 20091009
  Serious: No
  Sender: FDA-Public Use
  Company Number: US-BAYER-200915639NA

PATIENT
  Age: 48 Year
  Sex: Female

DRUGS (1)
  1. AVELOX [Suspect]
     Indication: LUNG INFECTION

REACTIONS (2)
  - DISCOMFORT [None]
  - TENDONITIS [None]
